FAERS Safety Report 5514680-0 (Version None)
Quarter: 2007Q4

REPORT INFORMATION
  Report Type: 
  Country: None (occurrence: None)
  Receive Date: 20071113
  Receipt Date: 20071102
  Transmission Date: 20080405
  Serious: Yes (Hospitalization)
  Sender: FDA-Public Use
  Company Number: FR-WYE-H01036507

PATIENT
  Age: 38 Year
  Sex: Female

DRUGS (4)
  1. CORDARONE [Suspect]
     Route: 048
     Dates: start: 20070914, end: 20070917
  2. PREVISCAN [Concomitant]
     Dosage: UNKNOWN
     Route: 048
     Dates: start: 20070914, end: 20070916
  3. PREVISCAN [Concomitant]
     Route: 048
     Dates: start: 20070917, end: 20070920
  4. DIGOXIN [Concomitant]
     Route: 048
     Dates: start: 20070914, end: 20070917

REACTIONS (2)
  - ACUTE GENERALISED EXANTHEMATOUS PUSTULOSIS [None]
  - INTERNATIONAL NORMALISED RATIO ABNORMAL [None]
